FAERS Safety Report 11377881 (Version 1)
Quarter: 2015Q3

REPORT INFORMATION
  Report Type: Spontaneous
  Country: US (occurrence: US)
  Receive Date: 20150811
  Receipt Date: 20150811
  Transmission Date: 20151125
  Serious: Yes (Other)
  Sender: FDA-Public Use
  Company Number: US-ELI_LILLY_AND_COMPANY-US200910008042

PATIENT
  Age: 62 Year
  Sex: Female

DRUGS (5)
  1. HUMULIN 50/50 [Suspect]
     Active Substance: INSULIN HUMAN
     Dosage: UNK, UNK
     Dates: start: 1993
  2. LIPITOR [Concomitant]
     Active Substance: ATORVASTATIN CALCIUM
  3. ACTOS [Concomitant]
     Active Substance: PIOGLITAZONE HYDROCHLORIDE
  4. HUMULIN 70/30 [Suspect]
     Active Substance: INSULIN HUMAN
     Dosage: UNK, UNK
     Dates: start: 1993, end: 1993
  5. HUMULIN 50/50 [Suspect]
     Active Substance: INSULIN HUMAN
     Dates: start: 1993

REACTIONS (6)
  - Drug ineffective [Recovered/Resolved]
  - Blood glucose decreased [Unknown]
  - Blood glucose decreased [Recovered/Resolved]
  - Dysarthria [Unknown]
  - Blood glucose fluctuation [Recovered/Resolved]
  - Hypoglycaemic coma [Unknown]

NARRATIVE: CASE EVENT DATE: 199308
